FAERS Safety Report 24749676 (Version 2)
Quarter: 2025Q1

REPORT INFORMATION
  Report Type: Report from Study
  Country: FR (occurrence: FR)
  Receive Date: 20241218
  Receipt Date: 20250117
  Transmission Date: 20250408
  Serious: Yes (Disabling, Other)
  Sender: PFIZER
  Company Number: FR-PFM-2024-06918

PATIENT
  Age: 70 Year
  Sex: Female
  Weight: 73 kg

DRUGS (20)
  1. ENCORAFENIB [Suspect]
     Active Substance: ENCORAFENIB
     Indication: Metastatic malignant melanoma
     Dosage: 450 MG DAILY
     Route: 065
     Dates: start: 20241202
  2. BINIMETINIB [Suspect]
     Active Substance: BINIMETINIB
     Indication: Metastatic malignant melanoma
     Dosage: 90 MG DAILY
     Route: 065
     Dates: start: 20241202, end: 20241203
  3. LANSOPRAZOLE [Concomitant]
     Active Substance: LANSOPRAZOLE
     Indication: Prophylaxis
     Dosage: 15 MG, PER DAY
     Route: 065
     Dates: start: 20241209
  4. GAVISCON [MAGNESIUM ALGINATE;SODIUM ALGINATE] [Concomitant]
     Indication: Prophylaxis
     Dosage: 10 ML PER DAY
     Route: 065
     Dates: start: 20241209
  5. POTASSIUM CHLORIDE [Concomitant]
     Active Substance: POTASSIUM CHLORIDE
     Indication: Prophylaxis
     Dosage: 600 MG 2 PER DAY
     Route: 065
     Dates: start: 20241209
  6. CALCIUM PHOSPHATE, DIBASIC, ANHYDROUS\MAGNESIUM GLYCEROPHOSPHATE\PHOSP [Concomitant]
     Active Substance: CALCIUM PHOSPHATE, DIBASIC, ANHYDROUS\MAGNESIUM GLYCEROPHOSPHATE\PHOSPHORIC ACID\SODIUM PHOSPHATE, D
     Indication: Hypophosphataemia
     Dosage: 1166 ML 3 TIMES PER DAY
     Route: 065
     Dates: start: 20241209
  7. PRAVASTATIN SODIUM [Concomitant]
     Active Substance: PRAVASTATIN SODIUM
     Indication: Prophylaxis
     Dosage: 20 MG PER DAY
     Route: 065
  8. LEVOTHYROXINE [Concomitant]
     Active Substance: LEVOTHYROXINE
     Indication: Hypothyroidism
     Route: 065
     Dates: start: 20241209
  9. KEPPRA [Concomitant]
     Active Substance: LEVETIRACETAM
     Route: 065
     Dates: start: 20241209
  10. SPIRONOLACTONE [Concomitant]
     Active Substance: SPIRONOLACTONE
     Dosage: 25 1 PER DAY
     Route: 065
  11. CANDESARTAN [Concomitant]
     Active Substance: CANDESARTAN
     Dosage: 4 MG PER DAY
     Route: 065
  12. PREDNISONE [Concomitant]
     Active Substance: PREDNISONE
     Dosage: 70 MG PER DAY
     Route: 065
     Dates: start: 20241209, end: 20241215
  13. PREDNISONE [Concomitant]
     Active Substance: PREDNISONE
     Dosage: 60 MG, DAILY
     Route: 065
     Dates: start: 20241216, end: 20241222
  14. PREDNISONE [Concomitant]
     Active Substance: PREDNISONE
     Dosage: 50 MG PER DAY
     Route: 065
     Dates: start: 20241223, end: 20241229
  15. PREDNISONE [Concomitant]
     Active Substance: PREDNISONE
     Dosage: 40 MG PER DAY
     Route: 065
     Dates: start: 20241230, end: 20250105
  16. REPEVAX [Concomitant]
     Active Substance: DIPHTHERIA AND TETANUS TOXOIDS AND ACELLULAR PERTUSSIS ADSORBED AND INACTIVATED POLIOVIRUS VACCINE
     Indication: Immunisation
     Route: 065
     Dates: start: 20241209, end: 20241209
  17. PREVNAR 20 [Concomitant]
     Active Substance: PNEUMOCOCCAL 20-VALENT CONJUGATE VACCINE
     Route: 065
     Dates: start: 20241209, end: 20241209
  18. INFLUENZA VIRUS VACCINE [Concomitant]
     Active Substance: INFLUENZA VIRUS VACCINE
     Indication: Immunisation
     Route: 065
     Dates: start: 20241210, end: 20241210
  19. COVID-19 VACCINE [Concomitant]
     Indication: Immunisation
     Route: 065
     Dates: start: 20241210, end: 20241210
  20. LYRICA [Concomitant]
     Active Substance: PREGABALIN
     Dosage: 75 UG 3 PER DAY
     Route: 065
     Dates: start: 20240906

REACTIONS (2)
  - Retinal detachment [Recovered/Resolved]
  - Gastrointestinal infection [Recovered/Resolved]

NARRATIVE: CASE EVENT DATE: 20241203
